FAERS Safety Report 22366084 (Version 1)
Quarter: 2023Q2

REPORT INFORMATION
  Report Type: Spontaneous
  Country: US (occurrence: None)
  Receive Date: 20230524
  Receipt Date: 20230524
  Transmission Date: 20230721
  Serious: No
  Sender: FDA-Public Use
  Company Number: None

PATIENT
  Sex: 0

DRUGS (1)
  1. AQUAPHOR HEALING [Suspect]
     Active Substance: PETROLATUM
     Indication: Dry skin
     Dosage: FREQUENCY : AS NEEDED;?
     Route: 061
     Dates: start: 20230106, end: 20230524

REACTIONS (1)
  - Skin exfoliation [None]

NARRATIVE: CASE EVENT DATE: 20230518
